FAERS Safety Report 4829364-1 (Version None)
Quarter: 2005Q4

REPORT INFORMATION
  Report Type: 
  Country: None (occurrence: None)
  Receive Date: 20051028
  Receipt Date: 20050812
  Transmission Date: 20060501
  Serious: No
  Sender: FDA-Public Use
  Company Number: COT_0196_2005

PATIENT
  Age: 53 Year

DRUGS (10)
  1. VENTAVIS [Suspect]
     Indication: PULMONARY HYPERTENSION
  2. COUMADIN [Concomitant]
  3. TORSEMIDE [Concomitant]
  4. TRACLEER [Concomitant]
  5. FAMOTIDINE [Concomitant]
  6. ALBUTEROL [Concomitant]
  7. FLONASE [Concomitant]
  8. K-DUR 10 [Concomitant]
  9. OS-CAL [Concomitant]
  10. MAGNESIUM [Concomitant]

REACTIONS (1)
  - PAIN IN JAW [None]
